FAERS Safety Report 13104560 (Version 1)
Quarter: 2017Q1

REPORT INFORMATION
  Report Type: Spontaneous
  Country: GB (occurrence: GB)
  Receive Date: 20170111
  Receipt Date: 20170111
  Transmission Date: 20170428
  Serious: Yes (Hospitalization)
  Sender: FDA-Public Use
  Company Number: GB-TEVA-727777ACC

PATIENT
  Age: 63 Year

DRUGS (9)
  1. CETIRIZINE [Concomitant]
     Active Substance: CETIRIZINE HYDROCHLORIDE
     Dosage: 10 MILLIGRAM DAILY;
  2. OMEPRAZOLE. [Suspect]
     Active Substance: OMEPRAZOLE
     Dosage: 20 MILLIGRAM DAILY;
     Dates: end: 20160715
  3. DOMPERIDONE [Concomitant]
     Active Substance: DOMPERIDONE
     Dosage: ONLY TAKES AS NEEDED TWICE A DAY.
  4. NAPROXEN. [Concomitant]
     Active Substance: NAPROXEN
     Indication: GOUT
     Dosage: ONE TABLET TWICE DAILY FOR TWO WEEKS AND THEN AS NECESSARY
     Dates: start: 20160627
  5. OMEPRAZOLE. [Suspect]
     Active Substance: OMEPRAZOLE
     Dosage: 40 MILLIGRAM DAILY;
  6. TRIMETHOPRIM. [Concomitant]
     Active Substance: TRIMETHOPRIM
     Dosage: 400 MILLIGRAM DAILY;
     Dates: start: 20160615
  7. MEZAVANT XL [Concomitant]
     Active Substance: MESALAMINE
     Dosage: 2400 MILLIGRAM DAILY;
  8. ALLOPURINOL. [Concomitant]
     Active Substance: ALLOPURINOL
     Dosage: 100 MILLIGRAM DAILY;
  9. GAVISCON ADVANCE [Concomitant]
     Active Substance: POTASSIUM BICARBONATE\SODIUM ALGINATE
     Dosage: 4 TIMES A DAY FOR 10 DAYS. NEWLY STARTED.
     Dates: start: 20160715

REACTIONS (2)
  - End stage renal disease [Unknown]
  - Tubulointerstitial nephritis [Not Recovered/Not Resolved]
